FAERS Safety Report 7302042-5 (Version None)
Quarter: 2011Q1

REPORT INFORMATION
  Report Type: 
  Country: None (occurrence: None)
  Receive Date: 20110208
  Receipt Date: 20110202
  Transmission Date: 20110831
  Serious: Yes (Hospitalization, Other)
  Sender: FDA-Public Use
  Company Number: ZYD-11-AE-010

PATIENT
  Age: 81 Year
  Sex: Female

DRUGS (4)
  1. NOVOLOG [Concomitant]
  2. LEVEMIR [Concomitant]
  3. METFORMIN 500MG TABLET (ZYDUS) [Suspect]
     Indication: TYPE 2 DIABETES MELLITUS
     Dosage: 1 TABLET - BID - ORAL
     Route: 048
     Dates: start: 20110101, end: 20110121
  4. NORVASC [Concomitant]

REACTIONS (7)
  - FLATULENCE [None]
  - GALLBLADDER OEDEMA [None]
  - OCULAR ICTERUS [None]
  - BILE DUCT OBSTRUCTION [None]
  - NAUSEA [None]
  - ABDOMINAL PAIN UPPER [None]
  - ABDOMINAL DISTENSION [None]
